FAERS Safety Report 8315734 (Version 4)
Quarter: 2014Q4

REPORT INFORMATION
  Report Type: Report from Study
  Country: US (occurrence: US)
  Receive Date: 20111229
  Receipt Date: 20141106
  Transmission Date: 20150529
  Serious: Yes (Hospitalization, Other)
  Sender: FDA-Public Use
  Company Number: US-MILLENNIUM PHARMACEUTICALS, INC.-2011-06562

PATIENT
  Age: 58 Year
  Sex: Male
  Weight: 87.98 kg

DRUGS (3)
  1. VELCADE [Suspect]
     Active Substance: BORTEZOMIB
     Indication: PLASMA CELL MYELOMA
     Dosage: 2.7 MG, 2/WEEK FOR 2 WEEKS
     Route: 042
     Dates: start: 20110727, end: 20111107
  2. CYCLOPHOSPHAMIDE. [Suspect]
     Active Substance: CYCLOPHOSPHAMIDE
     Indication: PLASMA CELL MYELOMA
     Dosage: 300 MG, 1/WEEK
     Route: 048
     Dates: start: 20110727, end: 20111107
  3. DEXAMETHASONE. [Suspect]
     Active Substance: DEXAMETHASONE
     Indication: PLASMA CELL MYELOMA
     Dosage: 40 MG, DAY 1-4, 9-12, 17-20
     Route: 048
     Dates: start: 20110727, end: 20111017

REACTIONS (6)
  - Anal fistula [Unknown]
  - Perirectal abscess [Recovered/Resolved with Sequelae]
  - Haemorrhoidal haemorrhage [Not Recovered/Not Resolved]
  - Syncope [Recovered/Resolved]
  - Hemianopia homonymous [Recovered/Resolved]
  - Headache [Unknown]

NARRATIVE: CASE EVENT DATE: 20111004
